FAERS Safety Report 4513323-2 (Version None)
Quarter: 2004Q4

REPORT INFORMATION
  Report Type: 
  Country: None (occurrence: None)
  Receive Date: 20041130
  Receipt Date: 20040805
  Transmission Date: 20050328
  Serious: No
  Sender: FDA-Public Use
  Company Number: US-BRISTOL-MYERS SQUIBB COMPANY-12661989

PATIENT
  Age: 73 Year
  Sex: Female
  Weight: 113 kg

DRUGS (8)
  1. ERBITUX [Suspect]
     Indication: COLON CANCER
     Route: 042
     Dates: start: 20040701, end: 20040701
  2. BENADRYL [Concomitant]
     Indication: PREMEDICATION
     Dates: start: 20040701, end: 20040701
  3. TYLENOL (CAPLET) [Concomitant]
     Indication: PREMEDICATION
     Dates: start: 20040701, end: 20040701
  4. PREDNISONE [Concomitant]
  5. DIOVAN [Concomitant]
  6. ACTOS [Concomitant]
  7. SYNTHROID [Concomitant]
  8. PROTONIX [Concomitant]

REACTIONS (1)
  - HYPOAESTHESIA [None]
